FAERS Safety Report 16908187 (Version 2)
Quarter: 2019Q4

REPORT INFORMATION
  Report Type: Spontaneous
  Country: US (occurrence: US)
  Receive Date: 20191011
  Receipt Date: 20191021
  Transmission Date: 20200122
  Serious: Yes (Hospitalization, Other)
  Sender: FDA-Public Use
  Company Number: US-PFIZER INC-2019439043

PATIENT
  Age: 5 Year
  Sex: Female

DRUGS (3)
  1. SEPTRA [Suspect]
     Active Substance: SULFAMETHOXAZOLE\TRIMETHOPRIM
     Indication: PROPHYLAXIS URINARY TRACT INFECTION
     Dosage: 125 MG, 2X/DAY (SUSPENSION)
     Dates: start: 19820309
  2. ASPIRIN. [Concomitant]
     Active Substance: ASPIRIN
     Indication: VIRAL INFECTION
     Dosage: UNK (TREATED HER SYMPTOMATICALLY WITH TWO BABY ASPIRIN TABLETS EVERY FOUR TO SIX HOURS FOR TWO DAYS)
     Route: 048
  3. VITAMIN K [Concomitant]
     Active Substance: PHYTONADIONE
     Indication: PROTHROMBIN TIME ABNORMAL
     Dosage: UNK

REACTIONS (1)
  - Cholestasis [Recovered/Resolved]
